FAERS Safety Report 5866512-9 (Version None)
Quarter: 2008Q3

REPORT INFORMATION
  Report Type: 
  Country: None (occurrence: None)
  Receive Date: 20080902
  Receipt Date: 20080902
  Transmission Date: 20090109
  Serious: Yes (Hospitalization)
  Sender: FDA-Public Use
  Company Number: PHEH1996US07361

PATIENT
  Sex: Male
  Weight: 78 kg

DRUGS (7)
  1. SANDIMMUNE [Suspect]
     Route: 048
     Dates: start: 19960626
  2. AZATHIOPRINE [Concomitant]
  3. NIZATIDINE [Concomitant]
  4. CLOTRIMAZOLE [Concomitant]
  5. ACYCLOVIR [Concomitant]
  6. SOTALOL HCL [Concomitant]
  7. PREDNISONE TAB [Concomitant]

REACTIONS (1)
  - TRANSPLANT REJECTION [None]
